FAERS Safety Report 5153284-9 (Version None)
Quarter: 2006Q4

REPORT INFORMATION
  Report Type: 
  Country: None (occurrence: None)
  Receive Date: 20061117
  Receipt Date: 20061110
  Transmission Date: 20070319
  Serious: Yes (Hospitalization)
  Sender: FDA-Public Use
  Company Number: IT-ROCHE-470714

PATIENT
  Age: 79 Year
  Sex: Female

DRUGS (2)
  1. BONIVA [Suspect]
     Indication: OSTEOPOROSIS
     Dosage: ROUTE REPORTED AS OS.
     Route: 048
     Dates: start: 20060113, end: 20061013
  2. ANTIHYPERTENSIVE NOS [Concomitant]
     Indication: HYPERTENSION
     Dosage: REPORTED AS UNSPECIFIED ANTIHYPERTENSIVE.

REACTIONS (1)
  - HEPATITIS CHOLESTATIC [None]
